FAERS Safety Report 5447780-4 (Version None)
Quarter: 2007Q3

REPORT INFORMATION
  Report Type: 
  Country: None (occurrence: None)
  Receive Date: 20070910
  Receipt Date: 20070831
  Transmission Date: 20080115
  Serious: Yes (Hospitalization)
  Sender: FDA-Public Use
  Company Number: JP-ALLERGAN-0709658US

PATIENT
  Sex: Female

DRUGS (2)
  1. BLINDED BOTOX PLACEBO [Suspect]
     Indication: SKIN WRINKLING
     Dosage: UNK, SINGLE
     Dates: start: 20070406, end: 20070406
  2. BLINDED BOTULINUM TOXIN TYPE A - COSMETIC [Suspect]
     Indication: SKIN WRINKLING
     Dosage: UNK, SINGLE
     Dates: start: 20070406, end: 20070406

REACTIONS (1)
  - LUMBAR VERTEBRAL FRACTURE [None]
